FAERS Safety Report 4940628-3 (Version None)
Quarter: 2006Q1

REPORT INFORMATION
  Report Type: 
  Country: None (occurrence: None)
  Receive Date: 20060206
  Receipt Date: 20050727
  Transmission Date: 20060701
  Serious: Yes (Hospitalization)
  Sender: FDA-Public Use
  Company Number: MEDI-0003575

PATIENT
  Age: 52 Year
  Sex: Male

DRUGS (6)
  1. ETHYOL [Suspect]
     Indication: CHEMOTHERAPY
     Dosage: 500 MG, 5 IN 1 WK, SUBCUTANEOUS
     Route: 058
     Dates: start: 20050531, end: 20050715
  2. ETHYOL [Suspect]
     Indication: RADIOTHERAPY
     Dosage: 500 MG, 5 IN 1 WK, SUBCUTANEOUS
     Route: 058
     Dates: start: 20050531, end: 20050715
  3. RADIATION THERAPY [Concomitant]
  4. TAXOTERE [Concomitant]
  5. CARBOPLATIN [Concomitant]
  6. CISPLATIN [Concomitant]

REACTIONS (4)
  - BLISTER [None]
  - PYREXIA [None]
  - RASH GENERALISED [None]
  - STEVENS-JOHNSON SYNDROME [None]
